FAERS Safety Report 16993256 (Version 1)
Quarter: 2019Q4

REPORT INFORMATION
  Report Type: Spontaneous
  Country: US (occurrence: US)
  Receive Date: 20191104
  Receipt Date: 20191104
  Transmission Date: 20200122
  Serious: No
  Sender: FDA-Public Use
  Company Number: None

PATIENT
  Age: 15 Year
  Sex: Male
  Weight: 63 kg

DRUGS (5)
  1. ZYRTEC [Concomitant]
     Active Substance: CETIRIZINE HYDROCHLORIDE
  2. TUMS [Concomitant]
     Active Substance: CALCIUM CARBONATE
  3. ADAPALENE AND BENZOYL PEROXIDE [Suspect]
     Active Substance: ADAPALENE\BENZOYL PEROXIDE
     Indication: ACNE
     Route: 061
     Dates: start: 20191101, end: 20191102
  4. IBRUPROFEN [Concomitant]
     Active Substance: IBUPROFEN
  5. 8 HOUR CREAM FOR DRY SKIN (ELIZABETH ARDEN) [Concomitant]

REACTIONS (4)
  - Heart rate decreased [None]
  - Urticaria [None]
  - Swelling [None]
  - Skin burning sensation [None]

NARRATIVE: CASE EVENT DATE: 20191101
